FAERS Safety Report 8025336-7 (Version None)
Quarter: 2012Q1

REPORT INFORMATION
  Report Type: 
  Country: None (occurrence: None)
  Receive Date: 20120105
  Receipt Date: 20111228
  Transmission Date: 20120608
  Serious: Yes (Hospitalization)
  Sender: FDA-Public Use
  Company Number: AT-PFIZER INC-2011276512

PATIENT
  Age: 65 Year
  Sex: Female
  Weight: 56 kg

DRUGS (3)
  1. CAMPTOSAR [Suspect]
     Indication: GASTRIC CANCER
     Dosage: 200 MG, CYCLIC (EVERY 15 DAYS)
     Route: 042
     Dates: start: 20110824, end: 20111102
  2. ELOXATIN [Suspect]
     Indication: GASTRIC CANCER
     Dosage: 130 MG, CYCLIC (EVERY 15 DAYS)
     Route: 042
     Dates: start: 20110824, end: 20111102
  3. AVASTIN [Suspect]
     Indication: GASTRIC CANCER
     Dosage: 300 MG, CYCLIC (EVERY 15 DAYS)
     Route: 042
     Dates: start: 20110824, end: 20111102

REACTIONS (1)
  - GASTRIC PERFORATION [None]
